FAERS Safety Report 5167973-3 (Version None)
Quarter: 2006Q4

REPORT INFORMATION
  Report Type: 
  Country: None (occurrence: None)
  Receive Date: 20061208
  Receipt Date: 20051209
  Transmission Date: 20070319
  Serious: No
  Sender: FDA-Public Use
  Company Number: US-GLAXOSMITHKLINE-A0585247A

PATIENT
  Age: 46 Year
  Sex: Female

DRUGS (14)
  1. AVANDAMET [Suspect]
     Dosage: 1TAB TWICE PER DAY
     Route: 048
     Dates: start: 20051118, end: 20051124
  2. HUMALOG [Suspect]
     Indication: DRUG USE FOR UNKNOWN INDICATION
  3. LANTUS [Suspect]
     Indication: DRUG USE FOR UNKNOWN INDICATION
  4. GLUCOPHAGE [Suspect]
  5. GLIPIZIDE [Suspect]
  6. ACTOS [Suspect]
  7. ACCUPRIL [Concomitant]
  8. VITAMIN B COMPLEX CAP [Concomitant]
  9. GERITOL [Concomitant]
  10. IRON SUPPLEMENT [Concomitant]
  11. FLAXSEED OIL [Concomitant]
  12. OMEGA 3 FATTY ACID [Concomitant]
  13. ALEVE [Concomitant]
  14. TYLENOL [Concomitant]

REACTIONS (1)
  - BLOOD GLUCOSE DECREASED [None]
